FAERS Safety Report 11096022 (Version 1)
Quarter: 2015Q2

REPORT INFORMATION
  Report Type: Spontaneous
  Country: HU (occurrence: HU)
  Receive Date: 20150507
  Receipt Date: 20150507
  Transmission Date: 20150821
  Serious: Yes (Other)
  Sender: FDA-Public Use
  Company Number: HU-ACCORD-030543

PATIENT
  Age: 45 Year
  Sex: Male

DRUGS (3)
  1. CARBAMAZEPINE. [Suspect]
     Active Substance: CARBAMAZEPINE
     Indication: FRONTAL LOBE EPILEPSY
  2. LEVETIRACETAM. [Suspect]
     Active Substance: LEVETIRACETAM
     Indication: FRONTAL LOBE EPILEPSY
  3. CLONAZEPAM. [Suspect]
     Active Substance: CLONAZEPAM
     Indication: FRONTAL LOBE EPILEPSY

REACTIONS (3)
  - Drug ineffective [Unknown]
  - Seizure [Unknown]
  - Condition aggravated [Unknown]
